FAERS Safety Report 8029866-3 (Version None)
Quarter: 2012Q1

REPORT INFORMATION
  Report Type: 
  Country: None (occurrence: None)
  Receive Date: 20120109
  Receipt Date: 20120103
  Transmission Date: 20120608
  Serious: Yes (Hospitalization)
  Sender: FDA-Public Use
  Company Number: US-ELI_LILLY_AND_COMPANY-US201201001041

PATIENT
  Sex: Male

DRUGS (9)
  1. PANTOPRAZOLE [Concomitant]
     Dosage: 40 MG, UNKNOWN
  2. ALBUTEROL [Concomitant]
     Dosage: UNK
  3. HUMULIN 70/30 [Suspect]
     Indication: TYPE 2 DIABETES MELLITUS
     Dosage: 35 U, BID
     Dates: start: 20100101, end: 20111118
  4. CARVEDILOL [Concomitant]
     Dosage: 12.5 MG, UNKNOWN
  5. SIMVASTATIN [Concomitant]
     Dosage: 10 MG, UNKNOWN
  6. FUROSEMIDE [Concomitant]
     Dosage: 40 MG, UNKNOWN
  7. HUMULIN R [Suspect]
     Indication: TYPE 2 DIABETES MELLITUS
     Dosage: SLIDING SCALE
     Dates: start: 20100101
  8. ACETAMINOPHEN [Concomitant]
     Dosage: UNK
  9. ADVAIR DISKUS 100/50 [Concomitant]
     Dosage: UNK

REACTIONS (4)
  - LETHARGY [None]
  - MYOCARDIAL INFARCTION [None]
  - LOSS OF CONSCIOUSNESS [None]
  - DYSPNOEA [None]
